FAERS Safety Report 11659556 (Version 2)
Quarter: 2015Q4

REPORT INFORMATION
  Report Type: Spontaneous
  Country: TW (occurrence: TW)
  Receive Date: 20151026
  Receipt Date: 20151202
  Transmission Date: 20160304
  Serious: Yes (Hospitalization, Other)
  Sender: FDA-Public Use
  Company Number: TW-WATSON-2015-20562

PATIENT
  Age: 10 Year
  Sex: Female
  Weight: 54 kg

DRUGS (2)
  1. FENTANYL (UNKNOWN) [Suspect]
     Active Substance: FENTANYL
     Indication: INDUCTION OF ANAESTHESIA
     Dosage: 100 ?G (1.85?G/KG) ADMINISTERED IN 30 SECONDS
     Route: 042
  2. LIDOCAINE (UNKNOWN) [Interacting]
     Active Substance: LIDOCAINE
     Indication: INDUCTION OF ANAESTHESIA
     Dosage: 50 MG (0.93 MG/KG) ADMINISTERED IN 3 SECONDS
     Route: 042

REACTIONS (2)
  - Epilepsy [Recovered/Resolved]
  - Drug interaction [Recovered/Resolved]
